FAERS Safety Report 6856980-8 (Version None)
Quarter: 2010Q3

REPORT INFORMATION
  Report Type: 
  Country: None (occurrence: None)
  Receive Date: 20100719
  Receipt Date: 20100625
  Transmission Date: 20110219
  Serious: Yes (Hospitalization, Disabling)
  Sender: FDA-Public Use
  Company Number: A0833427A

PATIENT
  Age: 56 Year
  Sex: Male
  Weight: 75 kg

DRUGS (6)
  1. AVANDIA [Suspect]
     Indication: DIABETES MELLITUS
     Dosage: 8MG TWICE PER DAY
     Route: 048
     Dates: start: 20030101, end: 20080101
  2. AVANDAMET [Suspect]
     Route: 048
     Dates: start: 20051220
  3. GLUCOTROL XL [Concomitant]
  4. TOPROL-XL [Concomitant]
  5. LIPITOR [Concomitant]
  6. LANTUS [Concomitant]

REACTIONS (5)
  - ACUTE CORONARY SYNDROME [None]
  - ANGINA PECTORIS [None]
  - CORONARY ARTERY DISEASE [None]
  - INTRACARDIAC THROMBUS [None]
  - MYOCARDIAL INFARCTION [None]
